FAERS Safety Report 7402336-9 (Version None)
Quarter: 2011Q2

REPORT INFORMATION
  Report Type: 
  Country: None (occurrence: None)
  Receive Date: 20110408
  Receipt Date: 20110314
  Transmission Date: 20111010
  Serious: No
  Sender: FDA-Public Use
  Company Number: US-B.I. PHARMACEUTICALS,INC./RIDGEFIELD-2011-BP-08258BP

PATIENT
  Sex: Female

DRUGS (4)
  1. LISINOPRIL [Concomitant]
     Indication: CARDIAC ARREST
  2. ASPIRIN [Concomitant]
     Indication: PROPHYLAXIS
  3. COREG [Concomitant]
     Indication: CARDIAC ARREST
  4. PRADAXA [Suspect]
     Indication: ATRIAL FIBRILLATION
     Dosage: 300 MG
     Route: 048
     Dates: start: 20110201, end: 20110301

REACTIONS (4)
  - OESOPHAGEAL PAIN [None]
  - ERUCTATION [None]
  - DYSPEPSIA [None]
  - DYSPHAGIA [None]
